FAERS Safety Report 13363130 (Version 2)
Quarter: 2017Q2

REPORT INFORMATION
  Report Type: Spontaneous
  Country: FR (occurrence: FR)
  Receive Date: 20170323
  Receipt Date: 20170503
  Transmission Date: 20170830
  Serious: Yes (Hospitalization, Other)
  Sender: FDA-Public Use
  Company Number: FR-PFIZER INC-2017117136

PATIENT
  Age: 94 Year
  Sex: Female

DRUGS (4)
  1. AMLOR [Concomitant]
     Active Substance: AMLODIPINE BESYLATE
  2. EFFEXOR LP [Suspect]
     Active Substance: VENLAFAXINE HYDROCHLORIDE
     Dosage: 56.25 MG, DAILY (1.5 DF, DAILY)
     Route: 048
     Dates: end: 20160914
  3. TAREG [Concomitant]
     Active Substance: VALSARTAN
  4. COUMADINE [Concomitant]
     Active Substance: WARFARIN SODIUM

REACTIONS (4)
  - Fall [Unknown]
  - Product use issue [Unknown]
  - Hyponatraemia [Recovered/Resolved]
  - Confusional state [Recovered/Resolved]

NARRATIVE: CASE EVENT DATE: 20160904
